FAERS Safety Report 23260932 (Version 1)
Quarter: 2023Q4

REPORT INFORMATION
  Report Type: Spontaneous
  Country: IT (occurrence: None)
  Receive Date: 20231205
  Receipt Date: 20231205
  Transmission Date: 20240110
  Serious: Yes (Hospitalization, Other)
  Sender: FDA-Public Use
  Company Number: IT-INFO-20230230

PATIENT
  Age: 74 Year
  Sex: Male

DRUGS (19)
  1. LEVOFLOXACIN [Suspect]
     Active Substance: LEVOFLOXACIN
  2. HYDROXYCHLOROQUINE [Suspect]
     Active Substance: HYDROXYCHLOROQUINE
  3. VANCOMYCIN [Suspect]
     Active Substance: VANCOMYCIN
  4. IOPAMIDOL [Suspect]
     Active Substance: IOPAMIDOL
  5. AZITHROMYCIN [Concomitant]
     Active Substance: AZITHROMYCIN
  6. PROPOFOL [Concomitant]
     Active Substance: PROPOFOL
  7. REMIFENTANIL [Concomitant]
     Active Substance: REMIFENTANIL
  8. ROCURONIUM [Concomitant]
     Active Substance: ROCURONIUM BROMIDE
  9. FLUCONAZOLE [Concomitant]
     Active Substance: FLUCONAZOLE
  10. ACETAMINOPHEN [Concomitant]
     Active Substance: ACETAMINOPHEN
  11. FUROSEMIDE [Concomitant]
     Active Substance: FUROSEMIDE
  12. CANRENONE [Concomitant]
     Active Substance: CANRENONE
  13. ENOXAPARIN [Concomitant]
     Active Substance: ENOXAPARIN
  14. CHLORPHENIRAMINE MALEATE [Concomitant]
     Active Substance: CHLORPHENIRAMINE MALEATE
  15. OMEPRAZOLE [Concomitant]
     Active Substance: OMEPRAZOLE
  16. CLONAZEPAM [Concomitant]
     Active Substance: CLONAZEPAM
  17. NOREPINEPHRINE [Concomitant]
     Active Substance: NOREPINEPHRINE
  18. TIGECYCLINE [Concomitant]
     Active Substance: TIGECYCLINE
  19. DAPTOMYCIN [Concomitant]
     Active Substance: DAPTOMYCIN

REACTIONS (1)
  - Drug reaction with eosinophilia and systemic symptoms [Not Recovered/Not Resolved]
